FAERS Safety Report 6317731-9 (Version None)
Quarter: 2009Q3

REPORT INFORMATION
  Report Type: 
  Country: None (occurrence: None)
  Receive Date: 20090821
  Receipt Date: 20090813
  Transmission Date: 20100115
  Serious: Yes (Hospitalization, Other)
  Sender: FDA-Public Use
  Company Number: PHHY2009CN33303

PATIENT
  Age: 31 Year
  Sex: Male

DRUGS (11)
  1. SANDIMMUNE [Suspect]
     Indication: CHRONIC GRAFT VERSUS HOST DISEASE
     Dosage: 250 MG/DAY
     Dates: start: 20060601
  2. SANDIMMUNE [Suspect]
     Indication: STEM CELL TRANSPLANT
  3. SANDIMMUNE [Suspect]
     Indication: CHRONIC MYELOID LEUKAEMIA
  4. CYCLOSPORINE [Suspect]
     Indication: CHRONIC GRAFT VERSUS HOST DISEASE
     Dosage: 500 MG/DAY
     Dates: start: 20060801
  5. CYCLOSPORINE [Suspect]
     Indication: STEM CELL TRANSPLANT
  6. METHYLPREDNISOLONE [Suspect]
     Indication: CHRONIC GRAFT VERSUS HOST DISEASE
     Dosage: 160 MG/DAY
     Dates: start: 20060801
  7. AMPHOTERICIN B [Concomitant]
     Dosage: 50 MG/DAY
     Route: 042
     Dates: start: 20060908
  8. AMPHOTERICIN B [Concomitant]
     Dosage: 25 MG/DAY
     Dates: start: 20061009, end: 20061203
  9. VORICONAZOLE [Concomitant]
     Dosage: 400 MG/DAY
     Route: 042
     Dates: start: 20060915
  10. VORICONAZOLE [Concomitant]
     Dosage: 400 MG/DAY
     Route: 048
     Dates: start: 20061113
  11. VORICONAZOLE [Concomitant]
     Dosage: 100 MG/DAY
     Route: 048

REACTIONS (11)
  - ASPERGILLOSIS [None]
  - DYSPNOEA [None]
  - EMPYEMA [None]
  - HAEMOTHORAX [None]
  - JAUNDICE [None]
  - LUNG INFECTION [None]
  - LUNG LOBECTOMY [None]
  - PRODUCTIVE COUGH [None]
  - PYREXIA [None]
  - SKIN MASS [None]
  - THORACIC CAVITY DRAINAGE [None]
